FAERS Safety Report 9723583 (Version 1)
Quarter: 2013Q4

REPORT INFORMATION
  Report Type: Spontaneous
  Country: US (occurrence: US)
  Receive Date: 20131202
  Receipt Date: 20131202
  Transmission Date: 20140711
  Serious: Yes (Hospitalization)
  Sender: FDA-Public Use
  Company Number: US-PFIZER INC-2013340170

PATIENT
  Age: 65 Year
  Sex: Male
  Weight: 72.56 kg

DRUGS (2)
  1. VFEND [Suspect]
     Indication: PULMONARY MYCOSIS
     Dosage: UNK, 2X/DAY
     Route: 048
     Dates: start: 2012
  2. ACYCLOVIR [Concomitant]
     Indication: ANTIVIRAL PROPHYLAXIS
     Dosage: 400 MG, 2X/DAY
     Route: 048

REACTIONS (3)
  - Escherichia sepsis [Unknown]
  - Headache [Unknown]
  - Wrong technique in drug usage process [Unknown]
